FAERS Safety Report 17840616 (Version 2)
Quarter: 2020Q2

REPORT INFORMATION
  Report Type: Spontaneous
  Country: US (occurrence: US)
  Receive Date: 20200529
  Receipt Date: 20200601
  Transmission Date: 20200714
  Serious: Yes (Hospitalization)
  Sender: FDA-Public Use
  Company Number: US-PFIZER INC-2020210977

PATIENT
  Age: 78 Year
  Sex: Male
  Weight: 90.72 kg

DRUGS (1)
  1. VYNDAMAX [Suspect]
     Active Substance: TAFAMIDIS
     Indication: AMYLOIDOSIS
     Dosage: UNK

REACTIONS (7)
  - Memory impairment [Unknown]
  - Off label use [Unknown]
  - Ascites [Unknown]
  - Dehydration [Unknown]
  - Constipation [Unknown]
  - Malaise [Unknown]
  - Product use in unapproved indication [Unknown]
